FAERS Safety Report 8606232-0 (Version None)
Quarter: 2012Q3

REPORT INFORMATION
  Report Type: 
  Country: None (occurrence: None)
  Receive Date: 20120820
  Receipt Date: 19960621
  Transmission Date: 20120928
  Serious: Yes (Hospitalization)
  Sender: FDA-Public Use
  Company Number: US-ROCHE-1101385

PATIENT
  Sex: Female

DRUGS (5)
  1. TRIDIL [Concomitant]
  2. HEPARIN [Concomitant]
     Route: 042
  3. MORPHINE SULFATE [Concomitant]
  4. ASPIRIN [Concomitant]
  5. ACTIVASE [Suspect]
     Indication: MYOCARDIAL INFARCTION

REACTIONS (3)
  - NODAL RHYTHM [None]
  - PAIN [None]
  - ELECTROCARDIOGRAM ST SEGMENT ELEVATION [None]
